FAERS Safety Report 7557100-7 (Version None)
Quarter: 2011Q2

REPORT INFORMATION
  Report Type: 
  Country: None (occurrence: None)
  Receive Date: 20110620
  Receipt Date: 20110608
  Transmission Date: 20111010
  Serious: Yes (Other)
  Sender: FDA-Public Use
  Company Number: US-ROCHE-734094

PATIENT
  Sex: Female
  Weight: 75.3 kg

DRUGS (1)
  1. ACCUTANE [Suspect]
     Indication: ACNE
     Route: 065
     Dates: start: 19940101, end: 19950601

REACTIONS (7)
  - COLITIS ULCERATIVE [None]
  - INFLAMMATORY BOWEL DISEASE [None]
  - DEPRESSION [None]
  - OBESITY [None]
  - HAEMORRHOIDS [None]
  - COLONIC POLYP [None]
  - GASTROINTESTINAL INJURY [None]
